FAERS Safety Report 19112302 (Version 1)
Quarter: 2021Q2

REPORT INFORMATION
  Report Type: Spontaneous
  Country: US (occurrence: US)
  Receive Date: 20210409
  Receipt Date: 20210409
  Transmission Date: 20210717
  Serious: Yes (Life-Threatening, Hospitalization)
  Sender: FDA-Public Use
  Company Number: None

PATIENT
  Age: 80 Year
  Sex: Male
  Weight: 312 kg

DRUGS (1)
  1. EDOXABAN (EDOXABAN 60MG TAB) [Suspect]
     Active Substance: EDOXABAN
     Indication: ATRIAL FIBRILLATION
     Route: 048
     Dates: start: 20200702, end: 20200720

REACTIONS (5)
  - Dizziness [None]
  - Dehydration [None]
  - Haemoglobin decreased [None]
  - Lethargy [None]
  - Gastrointestinal haemorrhage [None]

NARRATIVE: CASE EVENT DATE: 20200721
